FAERS Safety Report 25754445 (Version 1)
Quarter: 2025Q3

REPORT INFORMATION
  Report Type: Spontaneous
  Country: GB (occurrence: GB)
  Receive Date: 20250903
  Receipt Date: 20250903
  Transmission Date: 20251020
  Serious: Yes (Life-Threatening, Other)
  Sender: AUROBINDO
  Company Number: GB-MHRA-TPP27703163C30139659YC1755781435318

PATIENT
  Age: 46 Year
  Sex: Female
  Weight: 72 kg

DRUGS (20)
  1. IBUPROFEN [Suspect]
     Active Substance: IBUPROFEN
     Indication: Product used for unknown indication
     Route: 048
  2. FERROUS SULFATE [Concomitant]
     Active Substance: FERROUS SULFATE
     Indication: Ill-defined disorder
     Dosage: 1 DOSAGE FORM, ONCE A DAY
     Route: 065
     Dates: start: 20250527
  3. CEPHALEXIN [Concomitant]
     Active Substance: CEPHALEXIN
     Indication: Ill-defined disorder
     Route: 065
     Dates: start: 20250618
  4. FERROUS GLUCONATE [Concomitant]
     Active Substance: FERROUS GLUCONATE
     Indication: Ill-defined disorder
     Route: 065
     Dates: start: 20250624, end: 20250722
  5. BECLOMETHASONE\FORMOTEROL [Concomitant]
     Active Substance: BECLOMETHASONE\FORMOTEROL
     Indication: Ill-defined disorder
     Route: 065
     Dates: start: 20250821
  6. AMITRIPTYLINE HYDROCHLORIDE [Concomitant]
     Active Substance: AMITRIPTYLINE HYDROCHLORIDE
     Indication: Ill-defined disorder
     Route: 065
     Dates: start: 20250204
  7. ESTRIOL [Concomitant]
     Active Substance: ESTRIOL
     Indication: Ill-defined disorder
     Route: 065
     Dates: start: 20250204
  8. NITROGLYCERIN [Concomitant]
     Active Substance: NITROGLYCERIN
     Indication: Ill-defined disorder
     Route: 065
     Dates: start: 20250204
  9. BUTYLSCOPOLAMINE BROMIDE [Concomitant]
     Active Substance: BUTYLSCOPOLAMINE BROMIDE
     Indication: Ill-defined disorder
     Route: 065
     Dates: start: 20250204
  10. LANSOPRAZOLE [Concomitant]
     Active Substance: LANSOPRAZOLE
     Indication: Ill-defined disorder
     Route: 065
     Dates: start: 20250204
  11. LIDOCAINE [Concomitant]
     Active Substance: LIDOCAINE
     Indication: Ill-defined disorder
     Route: 065
     Dates: start: 20250204
  12. POLYETHYLENE GLYCOLS [Concomitant]
     Active Substance: POLYETHYLENE GLYCOLS
     Indication: Ill-defined disorder
     Route: 065
     Dates: start: 20250204
  13. ACETAMINOPHEN\BUCLIZINE HYDROCHLORIDE\CODEINE [Concomitant]
     Active Substance: ACETAMINOPHEN\BUCLIZINE HYDROCHLORIDE\CODEINE
     Indication: Ill-defined disorder
     Route: 065
     Dates: start: 20250204
  14. ASPIRIN DL-LYSINE\METOCLOPRAMIDE [Concomitant]
     Active Substance: ASPIRIN DL-LYSINE\METOCLOPRAMIDE
     Indication: Ill-defined disorder
     Route: 065
     Dates: start: 20250204
  15. NAPROXEN [Concomitant]
     Active Substance: NAPROXEN
     Indication: Ill-defined disorder
     Route: 065
     Dates: start: 20250204
  16. PROPRANOLOL [Concomitant]
     Active Substance: PROPRANOLOL HYDROCHLORIDE
     Indication: Ill-defined disorder
     Route: 065
     Dates: start: 20250204
  17. SENNA [Concomitant]
     Active Substance: SENNOSIDES
     Indication: Ill-defined disorder
     Route: 065
     Dates: start: 20250204
  18. SERTRALINE [Concomitant]
     Active Substance: SERTRALINE HYDROCHLORIDE
     Indication: Ill-defined disorder
     Route: 065
     Dates: start: 20250204
  19. TRAMADOL [Concomitant]
     Active Substance: TRAMADOL
     Indication: Ill-defined disorder
     Route: 065
     Dates: start: 20250204
  20. ZOLMITRIPTAN [Concomitant]
     Active Substance: ZOLMITRIPTAN
     Indication: Ill-defined disorder
     Route: 065
     Dates: start: 20250204

REACTIONS (1)
  - Anaphylactic reaction [Recovered/Resolved]
